FAERS Safety Report 8422432-7 (Version None)
Quarter: 2012Q2

REPORT INFORMATION
  Report Type: 
  Country: None (occurrence: None)
  Receive Date: 20120608
  Receipt Date: 20120604
  Transmission Date: 20120825
  Serious: Yes (Other)
  Sender: FDA-Public Use
  Company Number: US-PFIZER INC-2010035471

PATIENT
  Sex: Male

DRUGS (4)
  1. NAPROXEN [Concomitant]
     Indication: BACK PAIN
     Dosage: UNK
     Dates: start: 20050101, end: 20080101
  2. CHANTIX [Suspect]
     Indication: SMOKING CESSATION THERAPY
     Dosage: STARTING PACK AND CONTINUING MONTH PACKS
     Route: 048
     Dates: start: 20071001, end: 20080101
  3. FLEXERIL [Concomitant]
     Indication: BACK PAIN
     Dosage: UNK
     Dates: start: 20050101, end: 20090101
  4. ROBAXIN [Concomitant]
     Indication: MUSCLE RELAXANT THERAPY
     Dosage: UNK
     Dates: start: 20070201, end: 20080701

REACTIONS (9)
  - AGGRESSION [None]
  - INSOMNIA [None]
  - DEPRESSION [None]
  - BIPOLAR DISORDER [None]
  - NERVOUS SYSTEM DISORDER [None]
  - SUICIDE ATTEMPT [None]
  - ANXIETY [None]
  - MENTAL DISORDER [None]
  - SUICIDAL IDEATION [None]
